FAERS Safety Report 9730341 (Version 2)
Quarter: 2013Q4

REPORT INFORMATION
  Report Type: Spontaneous
  Country: GB (occurrence: GB)
  Receive Date: 20131204
  Receipt Date: 20131205
  Transmission Date: 20140711
  Serious: Yes (Other)
  Sender: FDA-Public Use
  Company Number: GB-ROCHE-1308015

PATIENT
  Age: 37 Year
  Sex: Female

DRUGS (7)
  1. XENICAL [Suspect]
     Indication: OBESITY
     Route: 048
     Dates: end: 20131120
  2. PREGABALIN [Concomitant]
     Route: 048
  3. RABEPRAZOLE [Concomitant]
     Route: 048
  4. METFORMIN [Concomitant]
     Indication: DIABETES MELLITUS
     Route: 048
  5. FLUOXETINE [Concomitant]
     Indication: DEPRESSION
     Dosage: 20 MG ALT 40 MG
     Route: 065
  6. AMITRIPTYLINE [Concomitant]
     Route: 048
  7. FERROUS SULPHATE [Concomitant]
     Route: 065

REACTIONS (1)
  - Urine analysis abnormal [Recovered/Resolved]
